FAERS Safety Report 11848843 (Version 1)
Quarter: 2015Q4

REPORT INFORMATION
  Report Type: Spontaneous
  Country: FR (occurrence: FR)
  Receive Date: 20151218
  Receipt Date: 20151218
  Transmission Date: 20160305
  Serious: Yes (Hospitalization)
  Sender: FDA-Public Use
  Company Number: FR-009507513-1512FRA006265

PATIENT
  Age: 34 Year
  Sex: Female

DRUGS (3)
  1. FOSTIMON [Suspect]
     Active Substance: UROFOLLITROPIN
     Dosage: 1 DF, QD (STRENGHT: 150 IU/ML)
     Route: 058
     Dates: start: 20140718, end: 20150726
  2. ORGALUTRAN [Suspect]
     Active Substance: GANIRELIX ACETATE
     Dosage: 1 DF, QD (0.25 MG/0.5ML)
     Route: 058
     Dates: start: 201407, end: 201407
  3. OVITRELLE [Suspect]
     Active Substance: CHORIOGONADOTROPIN ALFA
     Dosage: 1 DF, QD
     Route: 058
     Dates: start: 20140727

REACTIONS (2)
  - Ovarian hyperstimulation syndrome [Recovered/Resolved]
  - Ascites [Recovered/Resolved]

NARRATIVE: CASE EVENT DATE: 20140810
